FAERS Safety Report 9339134 (Version 2)
Quarter: 2013Q2

REPORT INFORMATION
  Report Type: Spontaneous
  Country: US (occurrence: None)
  Receive Date: 20130603
  Receipt Date: 20130613
  Transmission Date: 20140414
  Serious: Yes (Hospitalization, Other)
  Sender: FDA-Public Use
  Company Number: 2013PROUSA02850

PATIENT
  Age: 60 Year
  Sex: Male
  Weight: 123.4 kg

DRUGS (13)
  1. PROVENGE [Suspect]
     Indication: PROSTATE CANCER METASTATIC
     Dosage: 250ML, SIGNLE, INTRAVENOUS
     Route: 042
     Dates: start: 20130517, end: 20130517
  2. ZOFRAN (ONDANSETRON HYDROCHLORIDE) [Concomitant]
  3. MIRALAX [Concomitant]
  4. ACETAMINOPHEN (PARACETAMOL) [Concomitant]
  5. BICALUTAMIDE (BICALUTAMIDE) [Concomitant]
  6. CALCIUM WITH VITAMIN D (CALCIUM CARBONATE, COLECALCIFEROL) [Concomitant]
  7. HYDROCODONE/ACETAMINOPHEN (HYDROCODONE BITARTRATE, PARACETAMOL) [Concomitant]
  8. LOSARTAN (LOSARTAN POTASSIUM) [Concomitant]
  9. ALEVE (NAPROXEN SODIUM) [Concomitant]
  10. MULTIVITAMIN (VITAMINS NOS) [Concomitant]
  11. OXYCODONE HCL (OXYCODONE HYDROCHLORIDE) [Concomitant]
  12. GLYCOLAX (MACROGOL) [Concomitant]
  13. ZOMETA (ZOLEDRONIC ACID) [Concomitant]

REACTIONS (12)
  - Renal failure acute [None]
  - Nephrolithiasis [None]
  - Hydronephrosis [None]
  - Disease progression [None]
  - Dehydration [None]
  - Hyperparathyroidism [None]
  - Hypophagia [None]
  - Constipation [None]
  - Anaemia [None]
  - Nausea [None]
  - Myalgia [None]
  - Cough [None]
